FAERS Safety Report 21901627 (Version 1)
Quarter: 2023Q1

REPORT INFORMATION
  Report Type: Spontaneous
  Country: US (occurrence: US)
  Receive Date: 20230124
  Receipt Date: 20230124
  Transmission Date: 20230418
  Serious: Yes (Other)
  Sender: FDA-Public Use
  Company Number: US-ABBVIE-4278782

PATIENT
  Sex: Female
  Weight: 54 kg

DRUGS (1)
  1. HUMIRA [Suspect]
     Active Substance: ADALIMUMAB
     Indication: Product used for unknown indication
     Dosage: DRUG STARTED 8 TO 10 YEARS AGO
     Route: 058

REACTIONS (2)
  - Lupus-like syndrome [Unknown]
  - Hand deformity [Unknown]
